FAERS Safety Report 9790247 (Version 2)
Quarter: 2014Q1

REPORT INFORMATION
  Report Type: Spontaneous
  Country: US (occurrence: US)
  Receive Date: 20131231
  Receipt Date: 20140129
  Transmission Date: 20141002
  Serious: Yes (Other)
  Sender: FDA-Public Use
  Company Number: US-PFIZER INC-2013369218

PATIENT
  Age: 74 Year
  Sex: Male

DRUGS (13)
  1. FLUOROURACIL [Suspect]
     Indication: COLON CANCER METASTATIC
     Dosage: 865 MG
     Route: 042
     Dates: start: 19910710, end: 19910714
  2. FLUOROURACIL [Suspect]
     Dosage: 865 MG, UNK
     Route: 042
     Dates: start: 19910814, end: 19910814
  3. FLUOROURACIL [Suspect]
     Dosage: 865 MG, UNK
     Route: 042
     Dates: start: 19910821, end: 19910821
  4. FLUOROURACIL [Suspect]
     Dosage: 865 MG, UNK
     Route: 042
     Dates: start: 19910828, end: 19910828
  5. FLUOROURACIL [Suspect]
     Dosage: 865 MG, UNK
     Route: 042
     Dates: start: 19910904, end: 19910904
  6. FLUOROURACIL [Suspect]
     Dosage: 865 MG, UNK
     Route: 042
     Dates: start: 19910911, end: 19910911
  7. FLUOROURACIL [Suspect]
     Dosage: 865 MG, UNK
     Route: 042
     Dates: start: 19910918, end: 19910918
  8. LEVAMISOLE [Suspect]
     Indication: COLON CANCER METASTATIC
     Dosage: 50 MG, 3X/DAY
     Route: 048
     Dates: start: 19910710, end: 19910712
  9. LEVAMISOLE [Suspect]
     Dosage: 50 MG, 3X/DAY
     Route: 048
     Dates: start: 19910724, end: 19910726
  10. LEVAMISOLE [Suspect]
     Dosage: 50 MG, 3X/DAY
     Route: 048
     Dates: start: 19910814, end: 19910816
  11. LEVAMISOLE [Suspect]
     Dosage: 50 MG, 3X/DAY
     Route: 048
     Dates: start: 19910828, end: 19910830
  12. LEVAMISOLE [Suspect]
     Dosage: 50 MG, 3X/DAY
     Route: 048
     Dates: start: 19910911, end: 19910913
  13. ALLOPURINOL [Suspect]
     Indication: GOUT
     Dosage: 300 MG, DAILY

REACTIONS (1)
  - Leukoencephalopathy [Recovering/Resolving]
